FAERS Safety Report 22518680 (Version 1)
Quarter: 2023Q2

REPORT INFORMATION
  Report Type: Spontaneous
  Country: US (occurrence: US)
  Receive Date: 20230605
  Receipt Date: 20230605
  Transmission Date: 20230721
  Serious: Yes (Hospitalization, Other)
  Sender: FDA-Public Use
  Company Number: US-APOTEX-2023AP008560

PATIENT
  Age: 52 Year
  Sex: Female

DRUGS (9)
  1. GEMCITABINE [Suspect]
     Active Substance: GEMCITABINE
     Indication: HER2 positive breast cancer
     Dosage: 1000 MILLIGRAM/SQ. METER (ON DAYS 1 AND 8 OF A 21-DAY CYCLE.)
     Route: 065
  2. GEMCITABINE [Suspect]
     Active Substance: GEMCITABINE
     Indication: Invasive ductal breast carcinoma
  3. GEMCITABINE [Suspect]
     Active Substance: GEMCITABINE
     Indication: Breast cancer metastatic
  4. MARGETUXIMAB [Concomitant]
     Active Substance: MARGETUXIMAB
     Indication: HER2 positive breast cancer
     Dosage: 15 MILLIGRAM/KILOGRAM (ON DAY 1)
     Route: 065
  5. MARGETUXIMAB [Concomitant]
     Active Substance: MARGETUXIMAB
     Indication: Invasive ductal breast carcinoma
  6. MARGETUXIMAB [Concomitant]
     Active Substance: MARGETUXIMAB
     Indication: Breast cancer metastatic
  7. TRASTUZUMAB [Concomitant]
     Active Substance: TRASTUZUMAB
     Indication: HER2 positive breast cancer
     Dosage: UNK
     Route: 065
  8. TRASTUZUMAB [Concomitant]
     Active Substance: TRASTUZUMAB
     Indication: Invasive ductal breast carcinoma
  9. TRASTUZUMAB [Concomitant]
     Active Substance: TRASTUZUMAB
     Indication: Breast cancer metastatic

REACTIONS (2)
  - Dry gangrene [Recovering/Resolving]
  - Ischaemia [Recovering/Resolving]
